FAERS Safety Report 7795831-4 (Version None)
Quarter: 2011Q3

REPORT INFORMATION
  Report Type: 
  Country: None (occurrence: None)
  Receive Date: 20110930
  Receipt Date: 20110922
  Transmission Date: 20111222
  Serious: Yes (Hospitalization, Other)
  Sender: FDA-Public Use
  Company Number: 2010SP045138

PATIENT
  Age: 23 Year
  Sex: Female
  Weight: 97.5234 kg

DRUGS (2)
  1. NUVARING [Suspect]
     Indication: CONTRACEPTION
     Dates: start: 20040101, end: 20070110
  2. REGLAN [Suspect]
     Indication: IRRITABLE BOWEL SYNDROME
     Dates: start: 20051005, end: 20051007

REACTIONS (25)
  - HAEMOPTYSIS [None]
  - PNEUMONIA [None]
  - HERPES SIMPLEX [None]
  - MUSCLE SPASMS [None]
  - JAW DISORDER [None]
  - ADVERSE DRUG REACTION [None]
  - OVARIAN CYST [None]
  - HAEMATOCHEZIA [None]
  - DYSMENORRHOEA [None]
  - PULMONARY EMBOLISM [None]
  - PULMONARY INFARCTION [None]
  - MENORRHAGIA [None]
  - VAGINITIS BACTERIAL [None]
  - TONGUE DISORDER [None]
  - LIVER FUNCTION TEST ABNORMAL [None]
  - LUNG NEOPLASM [None]
  - LUNG INFILTRATION [None]
  - PROTEIN S DEFICIENCY [None]
  - URINARY TRACT INFECTION [None]
  - INFLAMMATORY BOWEL DISEASE [None]
  - DYSTONIA [None]
  - UTERINE POLYP [None]
  - MUSCLE TWITCHING [None]
  - DRUG HYPERSENSITIVITY [None]
  - SPEECH DISORDER [None]
